FAERS Safety Report 8512468-X (Version None)
Quarter: 2012Q2

REPORT INFORMATION
  Report Type: 
  Country: None (occurrence: None)
  Receive Date: 20120406
  Receipt Date: 20120131
  Transmission Date: 20120825
  Serious: Yes (Hospitalization)
  Sender: FDA-Public Use
  Company Number: US-CYPR-2012-000008

PATIENT
  Sex: Male
  Weight: 115 kg

DRUGS (13)
  1. ASPIRIN [Suspect]
     Indication: CORONARY ARTERY DISEASE
     Dosage: 81 MG ORAL
     Route: 048
     Dates: start: 20091013
  2. METFORMIN HYDROCHLORIDE [Concomitant]
  3. LANTUS [Concomitant]
  4. JANUFVIA [Concomitant]
  5. LIPITOR [Concomitant]
  6. CLOPIDOGREL [Suspect]
     Indication: ANTIPLATELET THERAPY
     Dosage: 75 MG ORAL
     Route: 048
     Dates: start: 20101101, end: 20120124
  7. GLYBURIDE [Concomitant]
  8. PEPCID [Concomitant]
  9. CYPHER STENT (2) [Concomitant]
  10. CYPHER STENT (3) [Concomitant]
  11. BYETTA [Concomitant]
  12. CLONAZEPAM [Concomitant]
  13. CYPHER STENT (1) [Concomitant]

REACTIONS (1)
  - CORONARY ARTERY DISEASE [None]
